FAERS Safety Report 23762639 (Version 1)
Quarter: 2024Q2

REPORT INFORMATION
  Report Type: Spontaneous
  Country: CN (occurrence: None)
  Receive Date: 20240419
  Receipt Date: 20240419
  Transmission Date: 20240716
  Serious: Yes (Hospitalization)
  Sender: FDA-Public Use
  Company Number: 2024A091667

PATIENT
  Age: 70 Year
  Sex: Male
  Weight: 76 kg

DRUGS (1)
  1. BUDESONIDE\FORMOTEROL FUMARATE [Suspect]
     Active Substance: BUDESONIDE\FORMOTEROL FUMARATE
     Indication: Bronchitis
     Dosage: 4.50 MG, DAILY
     Route: 055
     Dates: start: 20240321, end: 20240401

REACTIONS (3)
  - Chest discomfort [Recovering/Resolving]
  - Palpitations [Recovering/Resolving]
  - Insomnia [Recovering/Resolving]

NARRATIVE: CASE EVENT DATE: 20240402
